FAERS Safety Report 10131071 (Version 2)
Quarter: 2014Q3

REPORT INFORMATION
  Report Type: Spontaneous
  Country: FR (occurrence: FR)
  Receive Date: 20140428
  Receipt Date: 20140707
  Transmission Date: 20150326
  Serious: Yes (Hospitalization, Other)
  Sender: FDA-Public Use
  Company Number: FR-009507513-1404FRA010697

PATIENT
  Age: 60 Year
  Sex: Male

DRUGS (12)
  1. LAMICTAL [Suspect]
     Active Substance: LAMOTRIGINE
     Dosage: 25 MG, QD
     Dates: end: 20140319
  2. TIAPRIDAL [Suspect]
     Active Substance: TIAPRIDE HYDROCHLORIDE
     Route: 048
  3. NORSET [Suspect]
     Active Substance: MIRTAZAPINE
     Dosage: 45 MG, QD
     Route: 048
     Dates: end: 20140401
  4. SCOPODERM TTS [Concomitant]
     Active Substance: SCOPOLAMINE
     Dosage: 1 DF, Q3D
  5. XANAX [Suspect]
     Active Substance: ALPRAZOLAM
     Dosage: 0.5 DF, TID
  6. RIVOTRIL [Suspect]
     Active Substance: CLONAZEPAM
     Dosage: UNK, PRN
     Route: 030
     Dates: end: 20140319
  7. COUMADIN [Concomitant]
     Active Substance: WARFARIN SODIUM
     Route: 048
  8. INEXIUM [Concomitant]
     Active Substance: ESOMEPRAZOLE
     Route: 048
  9. RISPERDAL [Suspect]
     Active Substance: RISPERIDONE
     Dosage: 6 MG, QD
     Route: 048
  10. XATRAL [Concomitant]
     Active Substance: ALFUZOSIN
     Dosage: 1 DF, QD
     Route: 048
  11. DIPIPERON [Suspect]
     Active Substance: PIPAMPERONE
     Dosage: 5 GTT, TID
     Route: 048
     Dates: end: 20140319
  12. URBANYL [Suspect]
     Active Substance: CLOBAZAM
     Dosage: 1 DF, QD
     Route: 048

REACTIONS (5)
  - Accidental overdose [Recovered/Resolved]
  - Constipation [Recovered/Resolved]
  - Coma [Recovered/Resolved]
  - Altered state of consciousness [Recovered/Resolved]
  - Urinary retention [Recovered/Resolved]

NARRATIVE: CASE EVENT DATE: 20140319
